FAERS Safety Report 5868736-3 (Version None)
Quarter: 2008Q3

REPORT INFORMATION
  Report Type: 
  Country: None (occurrence: None)
  Receive Date: 20080828
  Receipt Date: 20080819
  Transmission Date: 20090109
  Serious: Yes (Other)
  Sender: FDA-Public Use
  Company Number: SPV1-2008-01745

PATIENT
  Age: 40 Year
  Sex: Male
  Weight: 65.3 kg

DRUGS (1)
  1. FOSRENOL [Suspect]
     Indication: RENAL DISORDER
     Dosage: 1000 MG, ORAL
     Route: 048
     Dates: start: 20080101

REACTIONS (2)
  - DRUG ADMINISTRATION ERROR [None]
  - FOREIGN BODY TRAUMA [None]
